FAERS Safety Report 23479888 (Version 1)
Quarter: 2024Q1

REPORT INFORMATION
  Report Type: Spontaneous
  Country: US (occurrence: US)
  Receive Date: 20240205
  Receipt Date: 20240205
  Transmission Date: 20240410
  Serious: No
  Sender: FDA-Public Use
  Company Number: US-UCBSA-2023044348

PATIENT
  Sex: Female

DRUGS (1)
  1. KEPPRA XR [Suspect]
     Active Substance: LEVETIRACETAM
     Indication: Partial seizures
     Dosage: 1000 MILLIGRAM, 2X/DAY (BID)
     Route: 048

REACTIONS (2)
  - Inappropriate schedule of product administration [Unknown]
  - Wrong technique in product usage process [Unknown]
